FAERS Safety Report 6897815-7 (Version None)
Quarter: 2010Q3

REPORT INFORMATION
  Report Type: 
  Country: None (occurrence: None)
  Receive Date: 20100802
  Receipt Date: 20070724
  Transmission Date: 20110219
  Serious: No
  Sender: FDA-Public Use
  Company Number: US-PFIZER INC-2007061614

PATIENT
  Sex: Female
  Weight: 86.3 kg

DRUGS (7)
  1. LYRICA [Suspect]
     Indication: SPINAL SHOCK
     Dates: start: 20070401
  2. LYRICA [Suspect]
     Indication: INTERVERTEBRAL DISC PROTRUSION
  3. INSULIN [Concomitant]
  4. ALTACE [Concomitant]
  5. PLAVIX [Concomitant]
  6. IMDUR [Concomitant]
  7. ACETYLSALICYLIC ACID SRT [Concomitant]

REACTIONS (3)
  - JOINT SWELLING [None]
  - MUSCLE TIGHTNESS [None]
  - OEDEMA PERIPHERAL [None]
